FAERS Safety Report 5983308-8 (Version None)
Quarter: 2008Q4

REPORT INFORMATION
  Report Type: 
  Country: None (occurrence: None)
  Receive Date: 20081208
  Receipt Date: 20080728
  Transmission Date: 20090506
  Serious: No
  Sender: FDA-Public Use
  Company Number: US-BAYER-200813216BCC

PATIENT
  Age: 26 Year
  Sex: Female
  Weight: 59 kg

DRUGS (3)
  1. ALEVE-D SINUS + COLD [Suspect]
     Indication: NASOPHARYNGITIS
     Dosage: TOTAL DAILY DOSE: 440 MG  UNIT DOSE: 220 MG
     Route: 048
     Dates: start: 20080727
  2. ONE-A-DAY WOMEN'S CAPLET [Suspect]
     Indication: VITAMIN SUPPLEMENTATION
     Dosage: AS USED: 1 DF  UNIT DOSE: 1 DF
     Dates: start: 20080501
  3. GENERIC ROBITUSSIN [Suspect]
     Dates: start: 20080727

REACTIONS (1)
  - INSOMNIA [None]
